FAERS Safety Report 9285276 (Version 1)
Quarter: 2013Q2

REPORT INFORMATION
  Report Type: Spontaneous
  Country: DE (occurrence: DE)
  Receive Date: 20130513
  Receipt Date: 20130513
  Transmission Date: 20140414
  Serious: Yes (Hospitalization)
  Sender: FDA-Public Use
  Company Number: DE-JNJFOC-20130417408

PATIENT
  Sex: Male

DRUGS (2)
  1. REMICADE [Suspect]
     Indication: RHEUMATOID ARTHRITIS
     Route: 042
     Dates: start: 2008
  2. REMICADE [Suspect]
     Indication: RHEUMATOID ARTHRITIS
     Dosage: THE PATIENT HAD BEEN TREATED WITH INFLIXIMAB FOR 13 YEARS
     Route: 042

REACTIONS (1)
  - Pyoderma gangrenosum [Unknown]
